FAERS Safety Report 8548610-4 (Version None)
Quarter: 2012Q3

REPORT INFORMATION
  Report Type: 
  Country: None (occurrence: None)
  Receive Date: 20120730
  Receipt Date: 20120720
  Transmission Date: 20120928
  Serious: Yes (Hospitalization)
  Sender: FDA-Public Use
  Company Number: US-BAYER-2012-015052

PATIENT
  Age: 19 Year
  Sex: Female
  Weight: 54.422 kg

DRUGS (4)
  1. YASMIN [Suspect]
     Indication: CONTRACEPTION
     Dosage: UNK
     Dates: start: 20051123, end: 20060502
  2. YASMIN [Suspect]
     Indication: ACNE
  3. YASMIN [Suspect]
     Indication: PREMENSTRUAL SYNDROME
  4. ADDERALL 5 [Concomitant]
     Indication: ATTENTION DEFICIT/HYPERACTIVITY DISORDER
     Dosage: 10 MG, EVERY WEEKDAY
     Dates: start: 20020101, end: 20090101

REACTIONS (2)
  - PULMONARY EMBOLISM [None]
  - PAIN [None]
